FAERS Safety Report 14775179 (Version 1)
Quarter: 2018Q2

REPORT INFORMATION
  Report Type: Spontaneous
  Country: US (occurrence: US)
  Receive Date: 20180418
  Receipt Date: 20180418
  Transmission Date: 20180711
  Serious: No
  Sender: FDA-Public Use
  Company Number: US-BAYER-2018-066220

PATIENT
  Sex: Male

DRUGS (6)
  1. BETASERON [Suspect]
     Active Substance: INTERFERON BETA-1B
     Indication: MULTIPLE SCLEROSIS
     Dosage: 0.25 MG, QOD
     Route: 058
     Dates: start: 20160722
  2. MELATONIN [Concomitant]
     Active Substance: MELATONIN
     Dosage: 10 MG, UNK
  3. VITAMIN D [Concomitant]
     Active Substance: CHOLECALCIFEROL
     Dosage: UNK
  4. IRON [Concomitant]
     Active Substance: IRON
     Dosage: 65 MG, UNK
  5. MULTIVITAMIN [Concomitant]
     Active Substance: VITAMINS
  6. NAPROXEN. [Concomitant]
     Active Substance: NAPROXEN
     Dosage: 500 MG, UNK

REACTIONS (5)
  - Paraesthesia [None]
  - Balance disorder [None]
  - Drug dose omission [None]
  - Visual impairment [None]
  - Hypoaesthesia [None]
